FAERS Safety Report 11195236 (Version 1)
Quarter: 2015Q2

REPORT INFORMATION
  Report Type: Spontaneous
  Country: IT (occurrence: None)
  Receive Date: 20150615
  Receipt Date: 20150615
  Transmission Date: 20150821
  Serious: Yes (Hospitalization)
  Sender: FDA-Public Use
  Company Number: FK201502762

PATIENT
  Age: 78 Year
  Sex: Male

DRUGS (4)
  1. ZALTRAP [Suspect]
     Active Substance: ZIV-AFLIBERCEPT
     Indication: RECTAL CANCER
     Dosage: CYCLICAL, NOT OTHERWISE SPECIFIED
     Route: 042
     Dates: start: 20150504, end: 20150504
  2. LEDERFOLIN [Suspect]
     Active Substance: LEUCOVORIN CALCIUM
     Indication: RECTAL CANCER
     Dosage: CYCLICAL, NOT OTHERWISE SPECIFIED
     Route: 042
     Dates: start: 20150504, end: 20150504
  3. IRINOTECAN (MANUFACTURER UNKNOWN) (IRINOTECAN) (IRINOTECAN) [Suspect]
     Active Substance: IRINOTECAN
     Indication: RECTAL CANCER
     Dosage: CYCLICAL, NOT OTHERWISE SPECIFIED
     Route: 042
     Dates: start: 20150504, end: 20150504
  4. FLUOROURACIL. [Suspect]
     Active Substance: FLUOROURACIL
     Indication: RECTAL CANCER
     Dosage: CYCLICAL
     Dates: start: 20150504, end: 20150506

REACTIONS (2)
  - Haemorrhoidal haemorrhage [None]
  - Neutropenia [None]

NARRATIVE: CASE EVENT DATE: 20150515
